FAERS Safety Report 5892939-5 (Version None)
Quarter: 2008Q3

REPORT INFORMATION
  Report Type: 
  Country: None (occurrence: None)
  Receive Date: 20080922
  Receipt Date: 20080922
  Transmission Date: 20090109
  Serious: Yes (Life-Threatening, Hospitalization, Other)
  Sender: FDA-Public Use
  Company Number: None

PATIENT
  Age: 20 Year
  Sex: Female
  Weight: 63.5036 kg

DRUGS (1)
  1. YAZ [Suspect]
     Indication: MENSTRUAL DISORDER
     Dosage: PRESCRIBED STRENGTH DAILY PO
     Route: 048

REACTIONS (1)
  - PHAEOCHROMOCYTOMA [None]
